FAERS Safety Report 10871602 (Version 1)
Quarter: 2015Q1

REPORT INFORMATION
  Report Type: Spontaneous
  Country: DE (occurrence: DE)
  Receive Date: 20150226
  Receipt Date: 20150226
  Transmission Date: 20150721
  Serious: Yes (Other)
  Sender: FDA-Public Use
  Company Number: PHHY2015DE022272

PATIENT
  Age: 47 Year
  Sex: Female

DRUGS (3)
  1. EPIRUBICIN [Suspect]
     Active Substance: EPIRUBICIN
     Indication: BREAST CANCER
     Route: 065
     Dates: start: 200812
  2. DOCETAXEL. [Suspect]
     Active Substance: DOCETAXEL
     Indication: BREAST CANCER
     Route: 065
     Dates: start: 200812
  3. TAMOXIFEN [Suspect]
     Active Substance: TAMOXIFEN
     Indication: BREAST CANCER
     Route: 065
     Dates: start: 200812

REACTIONS (16)
  - Fatigue [Unknown]
  - Arthralgia [Unknown]
  - Hyperhidrosis [Unknown]
  - Polyneuropathy [Unknown]
  - Disturbance in attention [Unknown]
  - Anxiety [Unknown]
  - Memory impairment [Unknown]
  - Depressed mood [Unknown]
  - Stress [Unknown]
  - Burning sensation [Unknown]
  - Vulvovaginal dryness [Unknown]
  - Hot flush [Unknown]
  - Libido decreased [Unknown]
  - Menopausal disorder [Unknown]
  - Cognitive disorder [Unknown]
  - Insomnia [Unknown]
